FAERS Safety Report 22264669 (Version 2)
Quarter: 2023Q2

REPORT INFORMATION
  Report Type: Spontaneous
  Country: JP (occurrence: JP)
  Receive Date: 20230428
  Receipt Date: 20230525
  Transmission Date: 20230722
  Serious: Yes (Other)
  Sender: FDA-Public Use
  Company Number: JP-MYLANLABS-2023M1044534

PATIENT
  Age: 66 Year
  Sex: Male

DRUGS (6)
  1. CARBOPLATIN [Suspect]
     Active Substance: CARBOPLATIN
     Indication: Neuroendocrine cancer of the prostate metastatic
     Dosage: AUC 5, DAY 1, REPEATED EVERY 4 WEEKS
     Route: 065
  2. CARBOPLATIN [Suspect]
     Active Substance: CARBOPLATIN
     Indication: Hormone-refractory prostate cancer
  3. ETOPOSIDE [Suspect]
     Active Substance: ETOPOSIDE
     Indication: Neuroendocrine cancer of the prostate metastatic
     Dosage: 100 MILLIGRAM/SQ. METER, QD, DAYS 1-3; REPEATED EVERY 3 WEEK
     Route: 065
  4. ETOPOSIDE [Suspect]
     Active Substance: ETOPOSIDE
     Indication: Hormone-refractory prostate cancer
     Dosage: 80 MILLIGRAM/SQ. METER, QD, DAYS 1-3, REPEATED EVERY 4 WEEKS
     Route: 065
  5. CISPLATIN [Suspect]
     Active Substance: CISPLATIN
     Indication: Neuroendocrine cancer of the prostate metastatic
     Dosage: 80 MILLIGRAM/SQ. METER, QD, DAY 1, REPEATED EVERY 3 WEEK
     Route: 065
  6. CISPLATIN [Suspect]
     Active Substance: CISPLATIN
     Indication: Hormone-refractory prostate cancer

REACTIONS (1)
  - Drug ineffective [Unknown]
